FAERS Safety Report 12360336 (Version 1)
Quarter: 2016Q2

REPORT INFORMATION
  Report Type: Spontaneous
  Country: US (occurrence: US)
  Receive Date: 20160512
  Receipt Date: 20160512
  Transmission Date: 20160815
  Serious: No
  Sender: FDA-Public Use
  Company Number: US-TARO-2015TAR00914

PATIENT
  Sex: Female

DRUGS (4)
  1. CLOTRIMAZOLE VAGINAL CREAM USP 2% 3 DAY [Suspect]
     Active Substance: CLOTRIMAZOLE
     Indication: VAGINAL DISCHARGE
     Dosage: UNK
     Dates: start: 20150926
  2. CLOTRIMAZOLE VAGINAL CREAM USP 2% 3 DAY [Suspect]
     Active Substance: CLOTRIMAZOLE
     Indication: VULVOVAGINAL ERYTHEMA
  3. CLOTRIMAZOLE VAGINAL CREAM USP 2% 3 DAY [Suspect]
     Active Substance: CLOTRIMAZOLE
     Indication: VULVOVAGINAL SWELLING
  4. CLOTRIMAZOLE VAGINAL CREAM USP 2% 3 DAY [Suspect]
     Active Substance: CLOTRIMAZOLE
     Indication: VULVOVAGINAL PRURITUS

REACTIONS (1)
  - Vaginal discharge [Not Recovered/Not Resolved]

NARRATIVE: CASE EVENT DATE: 20150927
